FAERS Safety Report 19956049 (Version 3)
Quarter: 2021Q4

REPORT INFORMATION
  Report Type: Report from Study
  Country: KR (occurrence: KR)
  Receive Date: 20211014
  Receipt Date: 20211018
  Transmission Date: 20220303
  Serious: Yes (Death, Hospitalization)
  Sender: FDA-Public Use
  Company Number: 2021A756116

PATIENT
  Age: 915 Month
  Sex: Female
  Weight: 71 kg

DRUGS (13)
  1. IMFINZI [Suspect]
     Active Substance: DURVALUMAB
     Indication: Non-small cell lung cancer
     Dosage: 710.0MG ONCE/SINGLE ADMINISTRATION
     Route: 042
     Dates: start: 20210830, end: 20210830
  2. LAMINA-G SOLN [Concomitant]
     Indication: Gastritis prophylaxis
     Route: 065
     Dates: start: 20210705, end: 202109
  3. ESODUO [Concomitant]
     Indication: Gastritis prophylaxis
     Dosage: 20/800 MG
     Route: 065
     Dates: start: 20210705
  4. BEPOTEN [Concomitant]
     Indication: Pruritus
     Route: 065
     Dates: start: 20210726
  5. MEGACE F [Concomitant]
     Indication: Decreased appetite
     Route: 065
     Dates: start: 20210705, end: 202109
  6. LACTULOSE [Concomitant]
     Active Substance: LACTULOSE
     Indication: Constipation prophylaxis
     Route: 065
     Dates: start: 20210722
  7. MOTILONE [Concomitant]
     Indication: Gastrooesophageal reflux disease
     Route: 065
     Dates: start: 20210722, end: 202109
  8. PENIRAMIN [Concomitant]
     Indication: Pruritus
     Route: 065
     Dates: start: 20210830
  9. G-CELL PLUS [Concomitant]
     Indication: Aspartate aminotransferase increased
     Route: 065
     Dates: start: 20210913
  10. SYNTHROID [Concomitant]
     Active Substance: LEVOTHYROXINE SODIUM
     Indication: Hypoparathyroidism
     Route: 065
     Dates: start: 2010
  11. SYNTHROID [Concomitant]
     Active Substance: LEVOTHYROXINE SODIUM
     Indication: Hypoparathyroidism
     Route: 065
     Dates: start: 2010
  12. EXFORGE [Concomitant]
     Active Substance: AMLODIPINE BESYLATE\VALSARTAN
     Indication: Hypertension
     Dosage: 5/160 MG
     Route: 065
     Dates: start: 2010
  13. HERBALS [Concomitant]
     Active Substance: HERBALS
     Indication: Dyspepsia
     Route: 065
     Dates: start: 2010

REACTIONS (1)
  - Interstitial lung disease [Fatal]

NARRATIVE: CASE EVENT DATE: 20210924
